FAERS Safety Report 7230816-8 (Version None)
Quarter: 2011Q1

REPORT INFORMATION
  Report Type: 
  Country: None (occurrence: None)
  Receive Date: 20110107
  Receipt Date: 20101228
  Transmission Date: 20110831
  Serious: Yes (Hospitalization)
  Sender: FDA-Public Use
  Company Number: 1000017992

PATIENT
  Age: 41 Year
  Sex: Female

DRUGS (7)
  1. TIAPRIDAL (TIAPRIDE) [Suspect]
     Dosage: (ONCE)
     Dates: start: 20091210, end: 20091210
  2. ESCITALOPRAM [Suspect]
     Dosage: (ONCE)
     Dates: start: 20091210, end: 20091210
  3. MEPRONIZINE (MEPROBAMATE, ACEPROMETAZINE) (TABLETS) [Suspect]
     Dosage: (39 DOSAGE FORMS,ONCE)
     Dates: start: 20091210, end: 20091210
  4. DEPAKOTE [Suspect]
     Dosage: (ONCE)
     Dates: start: 20091210, end: 20091210
  5. ZELITREX (VALACICLOVIR HYDROCHLORIDE) [Suspect]
     Dosage: (ONCE)
     Dates: start: 20091210, end: 20091210
  6. IMOVANE (ZOPICLONE) (TABLETS) [Suspect]
     Dosage: (42 DOSAGE FORMS, ONCE)
     Dates: start: 20091210, end: 20091210
  7. NEXIUM [Suspect]
     Dosage: (ONCE)
     Dates: start: 20091210, end: 20091210

REACTIONS (8)
  - COMA [None]
  - HYPOTHERMIA [None]
  - OXYGEN SATURATION DECREASED [None]
  - RHABDOMYOLYSIS [None]
  - BRADYPNOEA [None]
  - TOXICITY TO VARIOUS AGENTS [None]
  - HYPOTENSION [None]
  - MYDRIASIS [None]
